FAERS Safety Report 8281620-3 (Version None)
Quarter: 2012Q2

REPORT INFORMATION
  Report Type: 
  Country: None (occurrence: None)
  Receive Date: 20120413
  Receipt Date: 20120403
  Transmission Date: 20120825
  Serious: Yes (Other)
  Sender: FDA-Public Use
  Company Number: CA-JNJFOC-20120312604

PATIENT
  Sex: Male
  Weight: 108 kg

DRUGS (11)
  1. TERAZOSIN HCL [Concomitant]
     Route: 048
  2. ADALAT [Concomitant]
     Route: 048
  3. METFORMIN HCL [Concomitant]
     Route: 048
  4. METHOTREXATE [Concomitant]
     Route: 048
  5. OXYCONTIN [Concomitant]
     Dosage: 4-8 TABLETS
     Route: 048
  6. REMICADE [Suspect]
     Indication: ANKYLOSING SPONDYLITIS
     Route: 042
     Dates: start: 20120403
  7. COZAAR [Concomitant]
     Route: 048
  8. PANTOPRAZOLE SODIUM [Concomitant]
     Route: 048
  9. REMICADE [Suspect]
     Route: 042
     Dates: start: 20000210
  10. FOLIC ACID [Concomitant]
     Route: 048
  11. SENOKOT [Concomitant]
     Route: 048

REACTIONS (4)
  - PULMONARY EMBOLISM [None]
  - INFECTION [None]
  - OEDEMA PERIPHERAL [None]
  - CELLULITIS [None]
